FAERS Safety Report 10222192 (Version 2)
Quarter: 2014Q2

REPORT INFORMATION
  Report Type: Report from Study
  Country: AT (occurrence: AT)
  Receive Date: 20140606
  Receipt Date: 20140624
  Transmission Date: 20141212
  Serious: Yes (Hospitalization)
  Sender: FDA-Public Use
  Company Number: AT-ROCHE-1408725

PATIENT
  Age: 14 Year
  Sex: Male
  Weight: 46.4 kg

DRUGS (11)
  1. BEVACIZUMAB [Suspect]
     Indication: BRAIN NEOPLASM MALIGNANT
     Dosage: MOST RECENT DOSE PRIOR TO SAE 11 JUN 2014
     Route: 065
     Dates: start: 20140409
  2. CELECOXIB [Suspect]
     Indication: BRAIN NEOPLASM MALIGNANT
     Dosage: MOST RECENT DOSE PRIOR TO SAE 11 JUN 2014
     Route: 065
     Dates: start: 20140409
  3. CYCLOPHOSPHAMIDE [Suspect]
     Indication: BRAIN NEOPLASM MALIGNANT
     Dosage: MOST RECENT DOSE PRIOR TO SAE 11 JUN  2014
     Route: 065
     Dates: start: 20140430
  4. ETOPOSIDE [Suspect]
     Indication: BRAIN NEOPLASM MALIGNANT
     Route: 037
     Dates: start: 20140409, end: 20140610
  5. ETOPOSIDE [Suspect]
     Route: 048
  6. FENOFIBRATE [Suspect]
     Indication: BRAIN NEOPLASM MALIGNANT
     Dosage: MOST RECENT DOSE PRIOR TO SAE 11 JUN 2014
     Route: 065
     Dates: start: 20140409
  7. THALIDOMIDE [Suspect]
     Indication: BRAIN NEOPLASM MALIGNANT
     Dosage: MOST RECENT DOSE PRIOR TO SAE 11 JUN 2014
     Route: 065
     Dates: start: 20140409
  8. CYTARABINE [Suspect]
     Indication: BRAIN NEOPLASM MALIGNANT
     Dosage: MOST RECENT DOSE PRIOR TO SAE 11 JUN 2014
     Route: 037
     Dates: start: 20140409
  9. EUSAPRIM [Concomitant]
     Indication: PROPHYLAXIS
     Dosage: 2 X 8 MG (TUESDAY-THURSDAY)
     Route: 048
     Dates: start: 20140409
  10. NEXIUM [Concomitant]
     Indication: PROPHYLAXIS
     Route: 048
     Dates: start: 20140425
  11. THYREX [Concomitant]
     Indication: HYPOTHYROIDISM
     Route: 048
     Dates: start: 20120315

REACTIONS (1)
  - Epilepsy [Recovered/Resolved]
